FAERS Safety Report 9496136 (Version 1)
Quarter: 2013Q3

REPORT INFORMATION
  Report Type: Report from Study
  Country: US (occurrence: US)
  Receive Date: 20130904
  Receipt Date: 20130904
  Transmission Date: 20140515
  Serious: Yes (Hospitalization)
  Sender: FDA-Public Use
  Company Number: US-ASTRAZENECA-2013SE65517

PATIENT
  Age: 44 Year
  Sex: Female
  Weight: 108.9 kg

DRUGS (2)
  1. SYMBICORT PMDI [Suspect]
     Indication: CHRONIC OBSTRUCTIVE PULMONARY DISEASE
     Dosage: 160/4.5 MCG 2 PUFFS DAILY
     Route: 055
  2. CRESTOR [Suspect]
     Indication: BLOOD CHOLESTEROL INCREASED
     Route: 048

REACTIONS (7)
  - Sensory loss [Recovering/Resolving]
  - Transient ischaemic attack [Recovering/Resolving]
  - Diabetes mellitus [Unknown]
  - Blood cholesterol increased [Unknown]
  - Diabetes mellitus inadequate control [Unknown]
  - Intentional drug misuse [Recovered/Resolved]
  - Drug dose omission [Unknown]
